FAERS Safety Report 23231820 (Version 1)
Quarter: 2023Q4

REPORT INFORMATION
  Report Type: Spontaneous
  Country: None (occurrence: US)
  Receive Date: 20231127
  Receipt Date: 20231127
  Transmission Date: 20240110
  Serious: No
  Sender: FDA-Public Use
  Company Number: US-Westminster Pharmaceuticals, LLC-2148721

PATIENT
  Sex: Male

DRUGS (1)
  1. SODIUM FLUORIDE 5000 PPM [Suspect]
     Active Substance: SODIUM FLUORIDE
     Indication: Dental caries
     Route: 004
     Dates: start: 20230810, end: 20230826

REACTIONS (1)
  - Inflammation [Recovered/Resolved]

NARRATIVE: CASE EVENT DATE: 20230826
